FAERS Safety Report 6059268-0 (Version None)
Quarter: 2009Q1

REPORT INFORMATION
  Report Type: 
  Country: None (occurrence: None)
  Receive Date: 20090128
  Receipt Date: 20090128
  Transmission Date: 20090719
  Serious: Yes (Other)
  Sender: FDA-Public Use
  Company Number: None

PATIENT
  Age: 56 Year
  Sex: Male
  Weight: 66.6788 kg

DRUGS (1)
  1. ATENOLOL [Suspect]
     Indication: HYPERTENSION
     Dosage: 100MG DAILY PO
     Route: 048
     Dates: start: 20040710, end: 20080410

REACTIONS (4)
  - BLOOD PRESSURE INCREASED [None]
  - ONYCHOCLASIS [None]
  - PERIODONTAL DISEASE [None]
  - RAYNAUD'S PHENOMENON [None]
